FAERS Safety Report 9402055 (Version 1)
Quarter: 2013Q3

REPORT INFORMATION
  Report Type: Spontaneous
  Country: US (occurrence: US)
  Receive Date: 20130716
  Receipt Date: 20130716
  Transmission Date: 20140515
  Serious: Yes (Hospitalization)
  Sender: FDA-Public Use
  Company Number: PHEH2013US014614

PATIENT
  Sex: Female

DRUGS (3)
  1. FANAPT [Suspect]
     Dosage: 3 MG, BID
     Route: 048
     Dates: start: 20130619, end: 20130707
  2. NEURONTIN [Concomitant]
     Dosage: UNK UKN, UNK
  3. DEPAKOTE [Concomitant]
     Dosage: UNK UKN, UNK

REACTIONS (4)
  - Bipolar disorder [Unknown]
  - Micturition urgency [Recovered/Resolved]
  - Urinary incontinence [Recovered/Resolved]
  - Gait disturbance [Recovered/Resolved]
